FAERS Safety Report 8428083-2 (Version None)
Quarter: 2012Q2

REPORT INFORMATION
  Report Type: 
  Country: None (occurrence: None)
  Receive Date: 20120611
  Receipt Date: 20120222
  Transmission Date: 20120825
  Serious: No
  Sender: FDA-Public Use
  Company Number: US-ASTRAZENECA-2012SE12593

PATIENT
  Age: 59 Year
  Sex: Female

DRUGS (2)
  1. RHINOCORT [Suspect]
     Route: 045
  2. SEROQUEL XR [Suspect]
     Route: 048

REACTIONS (2)
  - MALAISE [None]
  - INCREASED UPPER AIRWAY SECRETION [None]
